FAERS Safety Report 16472586 (Version 1)
Quarter: 2019Q2

REPORT INFORMATION
  Report Type: Spontaneous
  Country: ES (occurrence: ES)
  Receive Date: 20190625
  Receipt Date: 20190625
  Transmission Date: 20190711
  Serious: Yes (Other)
  Sender: FDA-Public Use
  Company Number: ES-SUN PHARMACEUTICAL INDUSTRIES LTD-2019RR-211278

PATIENT
  Age: 66 Year
  Sex: Female
  Weight: 87 kg

DRUGS (5)
  1. TENORMIN 50 50MG 30 COMPRIMIDOS RANURADOS [Concomitant]
     Indication: HYPERTENSION
     Dosage: UNK
     Route: 048
     Dates: start: 20190101
  2. EZETROL 10 MG COMPRIMIDOS , 100 COMPRIMIDOS [Concomitant]
     Indication: HYPERCHOLESTEROLAEMIA
     Dosage: UNK
     Route: 048
     Dates: start: 20190101
  3. SIMVATATINA [Concomitant]
     Indication: HYPERCHOLESTEROLAEMIA
     Dosage: UNK
     Route: 048
     Dates: start: 20190101
  4. OXALIPLATIN. [Suspect]
     Active Substance: OXALIPLATIN
     Indication: TRANSITIONAL CELL CANCER OF THE RENAL PELVIS AND URETER
     Dosage: 197MG ()
     Route: 041
     Dates: start: 20190415
  5. GEMCITABINA HOSPIRA 2000 MG [Concomitant]
     Indication: TRANSITIONAL CELL CANCER OF THE RENAL PELVIS AND URETER
     Dosage: 1576MG
     Route: 041
     Dates: start: 20190415

REACTIONS (1)
  - Ototoxicity [Recovering/Resolving]

NARRATIVE: CASE EVENT DATE: 20190422
